FAERS Safety Report 16009912 (Version 1)
Quarter: 2019Q1

REPORT INFORMATION
  Report Type: Spontaneous
  Country: US (occurrence: US)
  Receive Date: 20190225
  Receipt Date: 20190225
  Transmission Date: 20190418
  Serious: Yes (Other)
  Sender: FDA-Public Use
  Company Number: US-BRISTOL-MYERS SQUIBB COMPANY-BMS-2019-017166

PATIENT
  Sex: Female
  Weight: 62.6 kg

DRUGS (5)
  1. PREDNISONE. [Suspect]
     Active Substance: PREDNISONE
     Indication: RHEUMATOID ARTHRITIS
     Dosage: 1 TAB, QD
     Route: 048
  2. ORENCIA [Suspect]
     Active Substance: ABATACEPT
     Indication: RHEUMATOID ARTHRITIS
     Dosage: UNK
     Route: 065
  3. XELJANZ XR [Suspect]
     Active Substance: TOFACITINIB CITRATE
     Indication: RHEUMATOID ARTHRITIS
     Dosage: 1 TAB, QD
     Route: 048
     Dates: start: 2017
  4. METHOTREXATE. [Suspect]
     Active Substance: METHOTREXATE
     Indication: RHEUMATOID ARTHRITIS
     Dosage: 4 TAB, QWK
     Route: 048
  5. ENBREL [Suspect]
     Active Substance: ETANERCEPT
     Indication: RHEUMATOID ARTHRITIS
     Dosage: UNK
     Route: 065

REACTIONS (12)
  - Pneumonia [Recovered/Resolved]
  - Weight increased [Not Recovered/Not Resolved]
  - Back disorder [Unknown]
  - Abdominal distension [Not Recovered/Not Resolved]
  - Abdominal mass [Unknown]
  - Arthropathy [Not Recovered/Not Resolved]
  - Feeling abnormal [Recovered/Resolved]
  - Contraindicated product administered [Unknown]
  - Rhinitis [Recovered/Resolved]
  - Hand deformity [Not Recovered/Not Resolved]
  - Nasal polyps [Unknown]
  - Perforation [Recovered/Resolved]

NARRATIVE: CASE EVENT DATE: 2017
